FAERS Safety Report 7269643-4 (Version None)
Quarter: 2011Q1

REPORT INFORMATION
  Report Type: 
  Country: None (occurrence: None)
  Receive Date: 20110202
  Receipt Date: 20110125
  Transmission Date: 20110831
  Serious: Yes (Other)
  Sender: FDA-Public Use
  Company Number: US-AMGEN-USASP2011004541

PATIENT
  Sex: Female

DRUGS (1)
  1. NEUPOGEN [Suspect]
     Indication: MYELODYSPLASTIC SYNDROME
     Dates: start: 20090101

REACTIONS (4)
  - TACHYCARDIA [None]
  - HYPERHIDROSIS [None]
  - HYPOTENSION [None]
  - CHEST DISCOMFORT [None]
